FAERS Safety Report 9076450 (Version 1)
Quarter: 2013Q1

REPORT INFORMATION
  Report Type: Spontaneous
  Country: US (occurrence: US)
  Receive Date: 20130129
  Receipt Date: 20130129
  Transmission Date: 20140127
  Serious: No
  Sender: FDA-Public Use
  Company Number: US-ABBOTT-12P-163-0948758-00

PATIENT
  Age: 40 Year
  Sex: 0

DRUGS (1)
  1. HUMIRA 40 MG/ 0.8 ML PRE-FILLED SYRINGE [Suspect]
     Indication: PRODUCT USED FOR UNKNOWN INDICATION

REACTIONS (7)
  - Pain [Unknown]
  - Carpal tunnel syndrome [Unknown]
  - Pain [Unknown]
  - Joint swelling [Unknown]
  - Insomnia [Unknown]
  - Arthralgia [Unknown]
  - Neuropathy peripheral [Unknown]
